FAERS Safety Report 19509413 (Version 2)
Quarter: 2021Q3

REPORT INFORMATION
  Report Type: Spontaneous
  Country: US (occurrence: US)
  Receive Date: 20210709
  Receipt Date: 20210805
  Transmission Date: 20211014
  Serious: Yes (Death, Life-Threatening, Hospitalization, Other)
  Sender: FDA-Public Use
  Company Number: US-AUROBINDO-AUR-APL-2021-028666

PATIENT
  Age: 62 Year
  Sex: Female
  Weight: 73.3 kg

DRUGS (1)
  1. METHOTREXATE. [Suspect]
     Active Substance: METHOTREXATE
     Indication: RHEUMATOID ARTHRITIS
     Dosage: UNK
     Route: 065

REACTIONS (13)
  - Toxicity to various agents [Fatal]
  - Emphysema [Fatal]
  - Metabolic acidosis [Fatal]
  - Hypotension [Fatal]
  - Pneumocystis jirovecii pneumonia [Fatal]
  - Acute respiratory distress syndrome [Fatal]
  - Pneumomediastinum [Fatal]
  - Pneumothorax [Fatal]
  - COVID-19 [Fatal]
  - Shock [Fatal]
  - COVID-19 pneumonia [Fatal]
  - Respiratory failure [Fatal]
  - Cardio-respiratory arrest [Fatal]

NARRATIVE: CASE EVENT DATE: 202006
